FAERS Safety Report 7618090-1 (Version None)
Quarter: 2011Q3

REPORT INFORMATION
  Report Type: 
  Country: None (occurrence: None)
  Receive Date: 20110718
  Receipt Date: 20110617
  Transmission Date: 20111222
  Serious: Yes (Other)
  Sender: FDA-Public Use
  Company Number: ZA-US-EMD SERONO, INC.-7065991

PATIENT
  Age: 32 Year
  Sex: Female

DRUGS (8)
  1. OVIDREL [Suspect]
     Indication: ARTIFICIAL INSEMINATION BY PARTNER
  2. GONAL-F [Suspect]
  3. GONAL-F [Suspect]
     Indication: ARTIFICIAL INSEMINATION BY PARTNER
  4. GONAL-F [Suspect]
  5. CLOMID [Concomitant]
     Indication: ARTIFICIAL INSEMINATION BY PARTNER
  6. CETROTIDE [Suspect]
     Indication: ARTIFICIAL INSEMINATION BY PARTNER
  7. PROGYNOVA [Concomitant]
     Indication: ARTIFICIAL INSEMINATION BY PARTNER
  8. MENOPUR [Concomitant]
     Indication: ARTIFICIAL INSEMINATION BY PARTNER

REACTIONS (2)
  - DRUG INEFFECTIVE [None]
  - ABORTION MISSED [None]
